FAERS Safety Report 24816676 (Version 7)
Quarter: 2025Q4

REPORT INFORMATION
  Report Type: Report from Study
  Country: CA (occurrence: CA)
  Receive Date: 20250107
  Receipt Date: 20251209
  Transmission Date: 20260117
  Serious: Yes (Other)
  Sender: JOHNSON AND JOHNSON
  Company Number: CA-JNJFOC-20240128841

PATIENT
  Age: 58 Year
  Sex: Female
  Weight: 72 kg

DRUGS (11)
  1. SIMPONI [Suspect]
     Active Substance: GOLIMUMAB
     Indication: Rheumatoid arthritis
     Route: 041
     Dates: start: 20161205
  2. SIMPONI [Suspect]
     Active Substance: GOLIMUMAB
     Route: 041
  3. SIMPONI [Suspect]
     Active Substance: GOLIMUMAB
     Route: 041
     Dates: start: 20161205
  4. SIMPONI [Suspect]
     Active Substance: GOLIMUMAB
     Route: 041
     Dates: start: 20161205
  5. SIMPONI [Suspect]
     Active Substance: GOLIMUMAB
     Route: 041
     Dates: start: 20161205
  6. SIMPONI [Suspect]
     Active Substance: GOLIMUMAB
     Route: 041
     Dates: start: 20161205
  7. SIMPONI [Suspect]
     Active Substance: GOLIMUMAB
     Route: 041
     Dates: start: 20161205
  8. SIMPONI [Suspect]
     Active Substance: GOLIMUMAB
     Route: 041
  9. SIMPONI [Suspect]
     Active Substance: GOLIMUMAB
     Route: 041
     Dates: start: 20251002
  10. Methotrexate 15 mg SC 1x/semaines [Concomitant]
     Indication: Product used for unknown indication
     Route: 058
  11. ADVIL [Concomitant]
     Active Substance: IBUPROFEN
     Indication: Product used for unknown indication

REACTIONS (11)
  - Rheumatoid arthritis [Not Recovered/Not Resolved]
  - Blood pressure decreased [Unknown]
  - COVID-19 [Recovered/Resolved]
  - Ligament sprain [Not Recovered/Not Resolved]
  - Tooth fracture [Recovered/Resolved]
  - Dental implantation [Recovered/Resolved]
  - Anaesthetic complication [Unknown]
  - Sinusitis [Recovered/Resolved]
  - Tooth abscess [Recovered/Resolved]
  - Influenza [Recovered/Resolved]
  - Product ineffective [Unknown]

NARRATIVE: CASE EVENT DATE: 20240105
